FAERS Safety Report 22363911 (Version 1)
Quarter: 2023Q2

REPORT INFORMATION
  Report Type: Spontaneous
  Country: CN (occurrence: None)
  Receive Date: 20230525
  Receipt Date: 20230525
  Transmission Date: 20230722
  Serious: Yes (Other)
  Sender: FDA-Public Use
  Company Number: CN-ROCHE-3354305

PATIENT
  Age: 60 Year
  Sex: Female

DRUGS (42)
  1. MABTHERA [Suspect]
     Active Substance: RITUXIMAB
     Indication: Mantle cell lymphoma
     Dosage: FCR  2 CYCLES
     Route: 065
     Dates: start: 20190924
  2. MABTHERA [Suspect]
     Active Substance: RITUXIMAB
     Indication: B-cell lymphoma
     Dosage: R-CDOP * 5 CYCLES, MOST RECENT DOSE ADMINISTERED 13/FEB/2020
     Route: 065
     Dates: start: 20191112
  3. MABTHERA [Suspect]
     Active Substance: RITUXIMAB
     Indication: Diffuse large B-cell lymphoma
     Route: 065
     Dates: start: 20200605
  4. MABTHERA [Suspect]
     Active Substance: RITUXIMAB
     Route: 065
     Dates: start: 20210126
  5. GAZYVA [Suspect]
     Active Substance: OBINUTUZUMAB
     Indication: Diffuse large B-cell lymphoma
     Dosage: 09/SEP/2022, 29/SEP/2022, 22/OCT/2022,
     Route: 041
     Dates: start: 20220819
  6. POLIVY [Suspect]
     Active Substance: POLATUZUMAB VEDOTIN-PIIQ
     Indication: Diffuse large B-cell lymphoma
     Route: 065
     Dates: start: 20221022
  7. FLUDARABINE [Concomitant]
     Active Substance: FLUDARABINE PHOSPHATE
     Indication: Mantle cell lymphoma
     Dosage: FCR  2 CYCLES
     Dates: start: 20190924
  8. CYCLOPHOSPHAMIDE [Concomitant]
     Active Substance: CYCLOPHOSPHAMIDE
     Indication: B-cell lymphoma
     Dosage: FCR  2 CYCLES
     Dates: start: 20190924
  9. CYCLOPHOSPHAMIDE [Concomitant]
     Active Substance: CYCLOPHOSPHAMIDE
     Indication: Diffuse large B-cell lymphoma
     Dosage: R-CDOP  5 CYCLES
     Dates: start: 20191112, end: 20200213
  10. CYCLOPHOSPHAMIDE [Concomitant]
     Active Substance: CYCLOPHOSPHAMIDE
     Indication: Mantle cell lymphoma
     Dosage: ICE 2 CYCLES, 05-MAR-2020, 28-MAR-2020
     Dates: start: 20200305
  11. CYCLOPHOSPHAMIDE [Concomitant]
     Active Substance: CYCLOPHOSPHAMIDE
     Dosage: CR-GEMOX
     Dates: start: 20210126
  12. VINCRISTINE [Concomitant]
     Active Substance: VINCRISTINE
     Indication: B-cell lymphoma
     Dosage: R-CDOP  5 CYCLES
     Dates: start: 20191112, end: 20200213
  13. DOXORUBICIN [Concomitant]
     Active Substance: DOXORUBICIN
     Indication: B-cell lymphoma
     Dosage: R-CDOP  5 CYCLES
     Dates: start: 20191112, end: 20200213
  14. DEXAMETHASONE [Concomitant]
     Active Substance: DEXAMETHASONE
     Indication: B-cell lymphoma
     Dosage: R-CDOP 5 CYCLES
     Dates: start: 20191112, end: 20200213
  15. DEXAMETHASONE [Concomitant]
     Active Substance: DEXAMETHASONE
     Indication: Diffuse large B-cell lymphoma
     Dates: start: 20220801
  16. DEXAMETHASONE [Concomitant]
     Active Substance: DEXAMETHASONE
     Dates: start: 20221022
  17. CARBOPLATIN [Concomitant]
     Active Substance: CARBOPLATIN
     Indication: B-cell lymphoma
     Dosage: ICE  2 CYCLES, 05-MAR-2020, 28/MAR/2020
     Dates: start: 20200305
  18. ETOPOSIDE [Concomitant]
     Active Substance: ETOPOSIDE
     Indication: B-cell lymphoma
     Dosage: ICE 2 CYCLES, 05-MAR-2020, 28/MAR/2020
     Dates: start: 20200305
  19. ETOPOSIDE [Concomitant]
     Active Substance: ETOPOSIDE
     Indication: Diffuse large B-cell lymphoma
     Dosage: 23-AUG-2022, 24-AUG-2022
     Dates: start: 20220823
  20. LENALIDOMIDE [Concomitant]
     Active Substance: LENALIDOMIDE
     Indication: B-cell lymphoma
     Dosage: 01/JUN/2023
     Dates: start: 20200422
  21. BENDAMUSTINE [Concomitant]
     Active Substance: BENDAMUSTINE
     Indication: Diffuse large B-cell lymphoma
     Dosage: BR
     Dates: start: 20200605
  22. VENETOCLAX [Concomitant]
     Active Substance: VENETOCLAX
     Indication: Diffuse large B-cell lymphoma
     Dates: start: 20200605
  23. VENETOCLAX [Concomitant]
     Active Substance: VENETOCLAX
     Dosage: 9-JUL-2020, 04-AUG-2020
     Dates: start: 20200709
  24. CYCLOSPORINE [Concomitant]
     Active Substance: CYCLOSPORINE
     Indication: Diffuse large B-cell lymphoma
     Dosage: 09-JUL-2020, 04-AUG-2020
     Dates: start: 20200709
  25. ZANUBRUTINIB [Concomitant]
     Active Substance: ZANUBRUTINIB
     Indication: Diffuse large B-cell lymphoma
     Dates: start: 20200905, end: 20210125
  26. GEMCITABINE [Concomitant]
     Active Substance: GEMCITABINE
     Indication: Diffuse large B-cell lymphoma
     Dosage: CR-GEMOX
     Dates: start: 20210126
  27. GEMCITABINE [Concomitant]
     Active Substance: GEMCITABINE
     Dosage: GEMOXD
     Dates: start: 20221022
  28. OXALIPLATIN [Concomitant]
     Active Substance: OXALIPLATIN
     Indication: Diffuse large B-cell lymphoma
     Dosage: CR-GEMOX
     Dates: start: 20210126
  29. OXALIPLATIN [Concomitant]
     Active Substance: OXALIPLATIN
     Dosage: GEMOXD
     Dates: start: 20221022
  30. ORELABRUTINIB [Concomitant]
     Active Substance: ORELABRUTINIB
     Indication: Diffuse large B-cell lymphoma
     Dates: start: 20210219, end: 20210510
  31. ORELABRUTINIB [Concomitant]
     Active Substance: ORELABRUTINIB
     Dates: start: 20220605
  32. ORELABRUTINIB [Concomitant]
     Active Substance: ORELABRUTINIB
     Dates: start: 20220806
  33. TISLELIZUMAB [Concomitant]
     Active Substance: TISLELIZUMAB
     Indication: Diffuse large B-cell lymphoma
     Dates: start: 20210219, end: 20210510
  34. PACLITAXEL [Concomitant]
     Active Substance: PACLITAXEL
     Indication: Diffuse large B-cell lymphoma
     Dates: start: 20210219, end: 20210510
  35. HEROMBOPAG OLAMINE [Concomitant]
     Indication: Diffuse large B-cell lymphoma
     Dates: start: 20220806
  36. HEROMBOPAG OLAMINE [Concomitant]
     Dates: start: 20220809, end: 20220815
  37. OPRELVEKIN [Concomitant]
     Active Substance: OPRELVEKIN
     Indication: Diffuse large B-cell lymphoma
     Dosage: 24 MILLION UNIT
     Dates: start: 20220806
  38. CEFOPERAZONE SODIUM\SULBACTAM SODIUM [Concomitant]
     Active Substance: CEFOPERAZONE SODIUM\SULBACTAM SODIUM
     Indication: Diffuse large B-cell lymphoma
     Dates: start: 20220809, end: 20220815
  39. IBANDRONIC ACID [Concomitant]
     Active Substance: IBANDRONIC ACID
  40. CALCITONIN [Concomitant]
     Active Substance: CALCITONIN
  41. SELINEXOR [Concomitant]
     Active Substance: SELINEXOR
     Indication: Diffuse large B-cell lymphoma
     Dosage: 09-SEP-2022, 29-SEP-2022
     Dates: start: 20220909
  42. DECITABINE [Concomitant]
     Active Substance: DECITABINE
     Indication: Diffuse large B-cell lymphoma
     Dates: start: 20221022

REACTIONS (5)
  - Hypoaesthesia [Unknown]
  - Mouth ulceration [Unknown]
  - Pneumonitis [Unknown]
  - Infusion related reaction [Unknown]
  - Intentional product use issue [Unknown]
